FAERS Safety Report 24222962 (Version 1)
Quarter: 2024Q3

REPORT INFORMATION
  Report Type: Spontaneous
  Country: CA (occurrence: CA)
  Receive Date: 20240819
  Receipt Date: 20240819
  Transmission Date: 20241017
  Serious: Yes (Other)
  Sender: SANDOZ
  Company Number: CA-SANDOZ-SDZ2024CA005984

PATIENT
  Age: 41 Year
  Sex: Female

DRUGS (28)
  1. BETAMETHASONE [Suspect]
     Active Substance: BETAMETHASONE\BETAMETHASONE DIPROPIONATE
     Indication: Dermatitis atopic
     Dosage: UNK
     Route: 061
  2. BETAMETHASONE [Suspect]
     Active Substance: BETAMETHASONE\BETAMETHASONE DIPROPIONATE
     Indication: Dermatitis papillaris capillitii
     Dosage: UNK
     Route: 065
  3. BETAMETHASONE DIPROPIONATE\CALCIPOTRIENE [Suspect]
     Active Substance: BETAMETHASONE DIPROPIONATE\CALCIPOTRIENE
     Indication: Dermatitis atopic
     Dosage: UNK
     Route: 003
  4. BETAMETHASONE DIPROPIONATE\CALCIPOTRIENE [Suspect]
     Active Substance: BETAMETHASONE DIPROPIONATE\CALCIPOTRIENE
     Indication: Dermatitis papillaris capillitii
     Dosage: UNK
     Route: 003
  5. BETAMETHASONE\SALICYLIC ACID [Suspect]
     Active Substance: BETAMETHASONE\SALICYLIC ACID
     Indication: Dermatitis papillaris capillitii
     Dosage: UNK
     Route: 061
  6. CLINDAMYCIN PHOSPHATE [Suspect]
     Active Substance: CLINDAMYCIN PHOSPHATE
     Dosage: UNK
     Route: 003
  7. CLINDAMYCIN PHOSPHATE [Suspect]
     Active Substance: CLINDAMYCIN PHOSPHATE
     Indication: Dermatitis atopic
     Dosage: UNK
     Route: 061
  8. CLINDAMYCIN PHOSPHATE [Suspect]
     Active Substance: CLINDAMYCIN PHOSPHATE
     Indication: Dermatitis papillaris capillitii
     Dosage: UNK
     Route: 065
  9. CLOBETASOL [Suspect]
     Active Substance: CLOBETASOL
     Indication: Dermatitis atopic
     Dosage: UNK
     Route: 061
  10. CLOBETASOL [Suspect]
     Active Substance: CLOBETASOL
     Indication: Dermatitis papillaris capillitii
     Dosage: UNK
     Route: 065
  11. CLOBETASOL PROPIONATE [Suspect]
     Active Substance: CLOBETASOL PROPIONATE
     Indication: Dermatitis papillaris capillitii
     Route: 065
  12. CLOBETASOL PROPIONATE [Suspect]
     Active Substance: CLOBETASOL PROPIONATE
     Indication: Dermatitis atopic
  13. DOXYCYCLINE HYCLATE [Suspect]
     Active Substance: DOXYCYCLINE HYCLATE
     Indication: Dermatitis atopic
     Dosage: UNK
     Route: 065
  14. DOXYCYCLINE HYCLATE [Suspect]
     Active Substance: DOXYCYCLINE HYCLATE
     Indication: Dermatitis papillaris capillitii
     Route: 065
  15. DUPILUMAB [Suspect]
     Active Substance: DUPILUMAB
     Indication: Dermatitis papillaris capillitii
     Dosage: UNK
     Route: 065
  16. DUPILUMAB [Suspect]
     Active Substance: DUPILUMAB
     Indication: Dermatitis atopic
  17. FUSIDIC ACID [Suspect]
     Active Substance: FUSIDIC ACID
     Dosage: UNK
     Route: 003
  18. FUSIDIC ACID [Suspect]
     Active Substance: FUSIDIC ACID
     Indication: Dermatitis atopic
     Dosage: UNK
     Route: 061
  19. FUSIDIC ACID [Suspect]
     Active Substance: FUSIDIC ACID
     Indication: Dermatitis papillaris capillitii
     Dosage: UNK
     Route: 065
  20. METHOTREXATE SODIUM [Suspect]
     Active Substance: METHOTREXATE SODIUM
     Indication: Dermatitis atopic
     Dosage: UNK
     Route: 065
  21. METHOTREXATE SODIUM [Suspect]
     Active Substance: METHOTREXATE SODIUM
     Indication: Dermatitis papillaris capillitii
     Dosage: UNK
     Route: 065
  22. MINOCYCLINE [Suspect]
     Active Substance: MINOCYCLINE HYDROCHLORIDE
     Indication: Dermatitis atopic
     Dosage: UNK
     Route: 065
  23. MINOCYCLINE [Suspect]
     Active Substance: MINOCYCLINE HYDROCHLORIDE
     Indication: Dermatitis papillaris capillitii
     Dosage: UNK
     Route: 065
  24. SALICYLIC ACID [Suspect]
     Active Substance: SALICYLIC ACID
     Dosage: UNK
     Route: 003
  25. SALICYLIC ACID [Suspect]
     Active Substance: SALICYLIC ACID
     Indication: Dermatitis atopic
     Dosage: UNK
     Route: 061
  26. SALICYLIC ACID [Suspect]
     Active Substance: SALICYLIC ACID
     Indication: Dermatitis papillaris capillitii
     Dosage: UNK
     Route: 065
  27. TRIAMCINOLONE [Suspect]
     Active Substance: TRIAMCINOLONE
     Indication: Dermatitis atopic
     Dosage: UNK
     Route: 026
  28. TRIAMCINOLONE [Suspect]
     Active Substance: TRIAMCINOLONE
     Indication: Dermatitis papillaris capillitii
     Dosage: UNK
     Route: 065

REACTIONS (3)
  - Treatment failure [Recovered/Resolved]
  - Drug ineffective [Unknown]
  - Off label use [Unknown]
